FAERS Safety Report 24185559 (Version 2)
Quarter: 2024Q4

REPORT INFORMATION
  Report Type: Report from Study
  Country: US (occurrence: US)
  Receive Date: 20240807
  Receipt Date: 20241118
  Transmission Date: 20250115
  Serious: No
  Sender: KYOWA
  Company Number: US-KYOWAKIRIN-2024KK018840

PATIENT

DRUGS (3)
  1. BUROSUMAB [Suspect]
     Active Substance: BUROSUMAB
     Indication: Phosphorus metabolism disorder
     Dosage: 30 MG, 1X/4 WEEKS
     Route: 058
     Dates: start: 202407
  2. BUROSUMAB [Suspect]
     Active Substance: BUROSUMAB
     Indication: Osteomalacia
     Dosage: 30 MG, 1X/4 WEEKS
     Route: 058
     Dates: start: 20240805
  3. BUROSUMAB [Suspect]
     Active Substance: BUROSUMAB
     Indication: Hypophosphataemic osteomalacia
     Dosage: UNK, 1X/4 WEEKS
     Route: 065
     Dates: start: 20240719

REACTIONS (3)
  - Blood phosphorus decreased [Recovered/Resolved]
  - Product use in unapproved indication [Not Recovered/Not Resolved]
  - Product storage error [Unknown]

NARRATIVE: CASE EVENT DATE: 20240701
